FAERS Safety Report 4510475-5 (Version None)
Quarter: 2004Q4

REPORT INFORMATION
  Report Type: 
  Country: None (occurrence: None)
  Receive Date: 20041122
  Receipt Date: 20041117
  Transmission Date: 20050328
  Serious: Yes (Hospitalization, Other)
  Sender: FDA-Public Use
  Company Number: 2004S1000181

PATIENT
  Age: 52 Year
  Sex: Male
  Weight: 80 kg

DRUGS (4)
  1. CUBICIN [Suspect]
     Indication: INTERVERTEBRAL DISCITIS
     Dosage: 480 MG;Q24H;IV
     Route: 042
     Dates: start: 20040723, end: 20040826
  2. CUBICIN [Suspect]
     Indication: OSTEOMYELITIS
     Dosage: 480 MG;Q24H;IV
     Route: 042
     Dates: start: 20040723, end: 20040826
  3. PREDNISONE [Concomitant]
  4. VANCOMYCIN [Concomitant]

REACTIONS (3)
  - BACTERAEMIA [None]
  - DISEASE RECURRENCE [None]
  - OSTEOMYELITIS [None]
